FAERS Safety Report 8018484-9 (Version None)
Quarter: 2011Q4

REPORT INFORMATION
  Report Type: 
  Country: None (occurrence: None)
  Receive Date: 20111227
  Receipt Date: 20111218
  Transmission Date: 20120403
  Serious: Yes (Death, Other)
  Sender: FDA-Public Use
  Company Number: 2011ST000548

PATIENT
  Age: 56 Year
  Sex: Male

DRUGS (1)
  1. ABELCET [Suspect]
     Indication: FUNGAL PERITONITIS
     Dosage: 5 MG/KG, QD, IV
     Route: 042
     Dates: start: 19961214, end: 19961224

REACTIONS (6)
  - BLOOD ALKALINE PHOSPHATASE INCREASED [None]
  - ASPARTATE AMINOTRANSFERASE INCREASED [None]
  - ACUTE RESPIRATORY DISTRESS SYNDROME [None]
  - BLOOD BILIRUBIN INCREASED [None]
  - RENAL FAILURE [None]
  - MULTI-ORGAN FAILURE [None]
